FAERS Safety Report 8010716-6 (Version None)
Quarter: 2011Q4

REPORT INFORMATION
  Report Type: 
  Country: None (occurrence: None)
  Receive Date: 20111228
  Receipt Date: 20111219
  Transmission Date: 20120403
  Serious: Yes (Other)
  Sender: FDA-Public Use
  Company Number: CA-JNJFOC-20111210487

PATIENT
  Sex: Male
  Weight: 70.9 kg

DRUGS (13)
  1. ANAPROX [Concomitant]
  2. CRESTOR [Concomitant]
  3. IMURAN [Concomitant]
  4. HUMALOG [Concomitant]
  5. ASACOL [Concomitant]
     Route: 048
  6. VITAMIN D [Concomitant]
  7. LANTUS [Concomitant]
  8. MULTI-VITAMINS [Concomitant]
  9. REMICADE [Suspect]
     Indication: CROHN'S DISEASE
     Route: 042
     Dates: start: 20110801
  10. ASPIRIN [Concomitant]
  11. CALCIUM ACETATE [Concomitant]
  12. ALPHA-TOCOPHEROL CAP [Concomitant]
  13. GARLIC [Concomitant]

REACTIONS (2)
  - RHINITIS [None]
  - COELIAC DISEASE [None]
